FAERS Safety Report 8344520-6 (Version None)
Quarter: 2012Q2

REPORT INFORMATION
  Report Type: 
  Country: None (occurrence: None)
  Receive Date: 20120508
  Receipt Date: 20120503
  Transmission Date: 20120825
  Serious: Yes (Hospitalization)
  Sender: FDA-Public Use
  Company Number: US-BAYER-2011-112545

PATIENT
  Age: 46 Year
  Sex: Female
  Weight: 65.4 kg

DRUGS (5)
  1. DEXTROMETHORPHAN HYDROBROMIDE [Concomitant]
     Dosage: UNK
     Dates: start: 20110204
  2. HYDROXYTRYPTOPHAN [Concomitant]
  3. YASMIN [Suspect]
     Dosage: UNK
     Dates: start: 20070101, end: 20110101
  4. GUAIFENESIN [Concomitant]
     Dosage: UNK
     Dates: start: 20110204
  5. YAZ [Suspect]
     Dosage: UNK
     Dates: start: 20070101, end: 20110101

REACTIONS (3)
  - CEREBROVASCULAR ACCIDENT [None]
  - THALAMIC INFARCTION [None]
  - EMOTIONAL DISTRESS [None]
